FAERS Safety Report 8568087-2 (Version None)
Quarter: 2012Q3

REPORT INFORMATION
  Report Type: 
  Country: None (occurrence: None)
  Receive Date: 20120803
  Receipt Date: 20120710
  Transmission Date: 20120928
  Serious: No
  Sender: FDA-Public Use
  Company Number: US-ABBOTT-12P-163-0954947-00

PATIENT
  Sex: Female
  Weight: 86.714 kg

DRUGS (4)
  1. OXYGEN [Concomitant]
     Indication: PRODUCT USED FOR UNKNOWN INDICATION
     Dosage: 24 HOURS A DAY
  2. NIASPAN [Suspect]
     Indication: BLOOD CHOLESTEROL ABNORMAL
     Dosage: 2 DOSE AT BEDTIME
     Dates: start: 20120706
  3. OTHER UNKNOWN MEDICINES [Concomitant]
     Indication: PRODUCT USED FOR UNKNOWN INDICATION
  4. ASPIRIN [Concomitant]
     Indication: PRODUCT USED FOR UNKNOWN INDICATION
     Dosage: BEFORE THE NIASPAN

REACTIONS (3)
  - PRURITUS [None]
  - RASH PRURITIC [None]
  - ERYTHEMA [None]
